FAERS Safety Report 8083501-7 (Version None)
Quarter: 2012Q1

REPORT INFORMATION
  Report Type: 
  Country: None (occurrence: None)
  Receive Date: 20120127
  Receipt Date: 20110203
  Transmission Date: 20120608
  Serious: No
  Sender: FDA-Public Use
  Company Number: US-ABBOTT-11P-163-0702753-00

PATIENT
  Sex: Male
  Weight: 107.6 kg

DRUGS (3)
  1. METHOTREXATE [Concomitant]
     Indication: PRODUCT USED FOR UNKNOWN INDICATION
  2. UNKNOWN BP MEDICATION [Concomitant]
     Indication: PRODUCT USED FOR UNKNOWN INDICATION
  3. HUMIRA [Suspect]
     Indication: RHEUMATOID ARTHRITIS
     Dates: start: 20100901

REACTIONS (5)
  - OROPHARYNGEAL PAIN [None]
  - SKIN LESION [None]
  - RHINORRHOEA [None]
  - COUGH [None]
  - INFLUENZA LIKE ILLNESS [None]
